FAERS Safety Report 12195317 (Version 3)
Quarter: 2016Q2

REPORT INFORMATION
  Report Type: Report from Study
  Country: JP (occurrence: JP)
  Receive Date: 20160321
  Receipt Date: 20160609
  Transmission Date: 20160815
  Serious: Yes (Hospitalization)
  Sender: FDA-Public Use
  Company Number: JP-TEVA-644531ISR

PATIENT
  Age: 74 Year
  Sex: Female
  Weight: 42.3 kg

DRUGS (12)
  1. REQUIP [Concomitant]
     Active Substance: ROPINIROLE HYDROCHLORIDE
     Dates: start: 20140428
  2. TAMIFLU [Concomitant]
     Active Substance: OSELTAMIVIR PHOSPHATE
     Dates: start: 20160304, end: 20160309
  3. MENESIT [Concomitant]
     Active Substance: CARBIDOPA\LEVODOPA
     Dates: start: 20160104
  4. HYALURONATE SODIUM [Concomitant]
     Active Substance: HYALURONATE SODIUM
     Dates: start: 2014
  5. PRORANON [Concomitant]
     Dates: start: 2014
  6. RASAGILINE MESILATE [Suspect]
     Active Substance: RASAGILINE MESYLATE
     Indication: PARKINSON^S DISEASE
     Dosage: 1 MILLIGRAM DAILY; DBPC: TVP-1012 AT 0.5 MG OR 1 MG OR PLACEBO
     Route: 048
     Dates: start: 20160119, end: 20160323
  7. DEPAS [Concomitant]
     Active Substance: ETIZOLAM
     Dates: start: 20160308
  8. ALTAT [Concomitant]
     Dates: start: 201210
  9. SANCOBA [Concomitant]
     Active Substance: CYANOCOBALAMIN
     Dates: start: 2014
  10. TRERIEF [Concomitant]
     Active Substance: ZONISAMIDE
     Dates: start: 20150413
  11. BONOTEO [Concomitant]
     Active Substance: MINODRONIC ACID
     Dates: start: 20130225
  12. DIQUAS [Concomitant]
     Active Substance: DIQUAFOSOL TETRASODIUM
     Dates: start: 2014

REACTIONS (2)
  - Stress cardiomyopathy [Recovered/Resolved]
  - Spondylitis [Not Recovered/Not Resolved]

NARRATIVE: CASE EVENT DATE: 20160307
